FAERS Safety Report 22368413 (Version 1)
Quarter: 2023Q2

REPORT INFORMATION
  Report Type: Spontaneous
  Country: IN (occurrence: IN)
  Receive Date: 20230525
  Receipt Date: 20230525
  Transmission Date: 20230721
  Serious: Yes (Other)
  Sender: FDA-Public Use
  Company Number: IN-PFIZER INC-2020113411

PATIENT
  Age: 56 Year
  Sex: Male
  Weight: 71.4 kg

DRUGS (13)
  1. SUTENT [Suspect]
     Active Substance: SUNITINIB MALATE
     Indication: Metastatic renal cell carcinoma
     Dosage: 50 MG, CYCLIC (2 WEEKS ON - 1 WEEK OFF)
     Route: 048
     Dates: start: 20190909, end: 20200522
  2. SUTENT [Suspect]
     Active Substance: SUNITINIB MALATE
     Dosage: 37.5 MG, CYCLIC (2WEEKS ON 1 WEEK OFF)
     Dates: start: 202007
  3. SUTENT [Suspect]
     Active Substance: SUNITINIB MALATE
     Dosage: 25 MG, CYCLIC (2 WEEKS ON 1 WEEK OFF )
     Route: 048
     Dates: start: 20210403
  4. SUTENT [Suspect]
     Active Substance: SUNITINIB MALATE
     Dosage: 25 MG, CYCLIC(10 DAYS ON AND 1 WEEK OFF  )
  5. SUTENT [Suspect]
     Active Substance: SUNITINIB MALATE
     Dosage: 25 MG, CYCLIC(ONE WEEK ON + ONE WEEK OFF)
     Dates: start: 202206
  6. FOLVITE [Concomitant]
     Active Substance: FOLIC ACID
     Dosage: 5 MG, 1X/DAY
  7. AMLODIPINE [Concomitant]
     Active Substance: AMLODIPINE BESYLATE
     Dosage: 2.5 MG, 1X/DAY
  8. BEVON [BROMHEXINE HYDROCHLORIDE] [Concomitant]
     Dosage: 1 DF, 3X/DAY
  9. COTARYL [Concomitant]
     Dosage: UNK
  10. CUTISOFT [Concomitant]
     Dosage: 1 DF, 1X/DAY (EMPTY STOMACH)
  11. PANTOPRAZOLE [Concomitant]
     Active Substance: PANTOPRAZOLE
     Dosage: UNK, 1X/DAY
  12. AMLODIPINE BESYLATE [Concomitant]
     Active Substance: AMLODIPINE BESYLATE
     Dosage: 5 MG
  13. MBSON SL [Concomitant]
     Dosage: 1 DF, WEEKLY (ONCE A WEEK FOR 6 WEEKS)

REACTIONS (21)
  - Ascites [Unknown]
  - Blood pressure increased [Unknown]
  - Skin toxicity [Recovered/Resolved]
  - Neoplasm progression [Unknown]
  - Heart rate increased [Unknown]
  - Oedema peripheral [Unknown]
  - Pain in extremity [Unknown]
  - Palmar-plantar erythrodysaesthesia syndrome [Unknown]
  - Arthralgia [Unknown]
  - Dermatitis allergic [Unknown]
  - Peripheral swelling [Unknown]
  - Rash [Unknown]
  - Pain [Unknown]
  - Sensitive skin [Unknown]
  - Blood uric acid increased [Unknown]
  - Blood thyroid stimulating hormone increased [Unknown]
  - Blood cholesterol increased [Unknown]
  - Blood triglycerides increased [Unknown]
  - Body mass index increased [Unknown]
  - Lymphadenopathy [Unknown]
  - Off label use [Unknown]

NARRATIVE: CASE EVENT DATE: 20200101
